FAERS Safety Report 24244497 (Version 2)
Quarter: 2024Q3

REPORT INFORMATION
  Report Type: Spontaneous
  Country: VN (occurrence: VN)
  Receive Date: 20240823
  Receipt Date: 20240828
  Transmission Date: 20241016
  Serious: Yes (Other)
  Sender: BOEHRINGER INGELHEIM
  Company Number: VN-BoehringerIngelheim-2024-BI-047177

PATIENT
  Age: 76 Year
  Sex: Female
  Weight: 50 kg

DRUGS (9)
  1. EMPAGLIFLOZIN [Suspect]
     Active Substance: EMPAGLIFLOZIN
     Indication: Cardiac failure
     Dosage: HALF OF DOSAGE FORM IN THE MORNING AFTER MEAL.
     Route: 048
     Dates: start: 20240808, end: 20240820
  2. EMPAGLIFLOZIN [Suspect]
     Active Substance: EMPAGLIFLOZIN
     Indication: Type 2 diabetes mellitus
  3. Tivogg (warfarin) [Concomitant]
     Indication: Product used for unknown indication
     Dosage: 1.5 DOSAGE FORM IN THE MORNING, DRINK 1 DOSAGE FORM ON SUNDAY.
     Route: 048
  4. COZAAR [Concomitant]
     Active Substance: LOSARTAN POTASSIUM
     Indication: Product used for unknown indication
     Dosage: ONE DOSAGE FORM IN THE MORNING AFTER MEAL.
     Route: 048
  5. Atrox (Atorvastatin) [Concomitant]
     Indication: Product used for unknown indication
     Dosage: 1 DOSAGE FORM IN THE EVENING.
     Route: 048
  6. TOUJEO [Concomitant]
     Active Substance: INSULIN GLARGINE
     Indication: Product used for unknown indication
     Route: 058
  7. BISOPROLOL FUMARATE [Concomitant]
     Active Substance: BISOPROLOL FUMARATE
     Indication: Product used for unknown indication
     Dosage: 1 DOSAGE FORM IN THE MORNING AFTER MEAL.
     Route: 048
  8. Savispirono Plus [Concomitant]
     Indication: Product used for unknown indication
     Dosage: FUROSEMIDE 20 MG/ SPIRONOLACTON 50 MG. HALF OF DOSAGE FORM IN THE MORNING AFTER MEAL.
     Route: 048
  9. Rapeto-40 (Rabeprazole sodium) [Concomitant]
     Indication: Product used for unknown indication

REACTIONS (1)
  - Lactic acidosis [Recovered/Resolved]

NARRATIVE: CASE EVENT DATE: 20240821
